FAERS Safety Report 22648068 (Version 1)
Quarter: 2023Q2

REPORT INFORMATION
  Report Type: Spontaneous
  Country: IN (occurrence: IN)
  Receive Date: 20230628
  Receipt Date: 20230628
  Transmission Date: 20230721
  Serious: Yes (Death, Hospitalization, Other)
  Sender: FDA-Public Use
  Company Number: IN-ALKEM LABORATORIES LIMITED-IN-ALKEM-2023-06902

PATIENT
  Age: 57 Year
  Sex: Male

DRUGS (3)
  1. LAMOTRIGINE [Interacting]
     Active Substance: LAMOTRIGINE
     Indication: Bipolar disorder
     Dosage: 25 MILLIGRAM, QD (INITIAL DOSE)
     Route: 065
  2. LAMOTRIGINE [Interacting]
     Active Substance: LAMOTRIGINE
     Dosage: 75 MILLIGRAM, QD (FINAL DOSE)
     Route: 065
  3. VALPROIC ACID [Interacting]
     Active Substance: VALPROIC ACID
     Indication: Bipolar disorder
     Dosage: 1200 MILLIGRAM, QD (MG/D)
     Route: 065

REACTIONS (4)
  - Drug interaction [Fatal]
  - Stevens-Johnson syndrome [Fatal]
  - Dysphagia [Recovered/Resolved]
  - Haematuria [Recovered/Resolved]
